FAERS Safety Report 8545333 (Version 3)
Quarter: 2016Q4

REPORT INFORMATION
  Report Type: Report from Study
  Country: DE (occurrence: DE)
  Receive Date: 20120503
  Receipt Date: 20161229
  Transmission Date: 20170207
  Serious: Yes (Hospitalization, Other)
  Sender: FDA-Public Use
  Company Number: DE-CELGENEUS-062-50794-12042221

PATIENT
  Age: 68 Year
  Sex: Female
  Weight: 70 kg

DRUGS (6)
  1. L THYROXIN [Concomitant]
     Active Substance: LEVOTHYROXINE SODIUM
     Indication: PRODUCT USED FOR UNKNOWN INDICATION
     Dosage: 100 MICROGRAM
     Route: 065
  2. ONDASETRON [Concomitant]
     Active Substance: ONDANSETRON
     Indication: PRODUCT USED FOR UNKNOWN INDICATION
     Dosage: NOT PROVIDED
     Route: 048
     Dates: start: 20120123
  3. VIDAZA [Suspect]
     Active Substance: AZACITIDINE
     Dosage: 70 MILLIGRAM
     Route: 058
     Dates: end: 20120330
  4. VIDAZA [Suspect]
     Active Substance: AZACITIDINE
     Indication: MYELODYSPLASTIC SYNDROME
     Dosage: 135 MILLIGRAM
     Route: 058
     Dates: start: 20120123, end: 20120131
  5. VIDAZA [Suspect]
     Active Substance: AZACITIDINE
     Dosage: 135 MILLIGRAM
     Route: 058
     Dates: start: 20120220, end: 20120221
  6. VIDAZA [Suspect]
     Active Substance: AZACITIDINE
     Dosage: 70 MILLIGRAM
     Route: 058
     Dates: start: 20120221, end: 20120228

REACTIONS (8)
  - Fat necrosis [Recovered/Resolved]
  - Granulomatosis with polyangiitis [Recovered/Resolved]
  - General physical health deterioration [Recovered/Resolved]
  - Neutropenia [Recovered/Resolved]
  - Breast cancer recurrent [Recovered/Resolved]
  - Thrombocytopenia [Recovered/Resolved]
  - Pneumonia [Recovered/Resolved]
  - Hypoalbuminaemia [Recovered/Resolved]

NARRATIVE: CASE EVENT DATE: 201202
